FAERS Safety Report 6707686-7 (Version None)
Quarter: 2010Q2

REPORT INFORMATION
  Report Type: 
  Country: None (occurrence: None)
  Receive Date: 20100503
  Receipt Date: 20090713
  Transmission Date: 20101027
  Serious: No
  Sender: FDA-Public Use
  Company Number: US-ASTRAZENECA-2009UW19636

PATIENT
  Age: 56 Year
  Sex: Female

DRUGS (3)
  1. NEXIUM [Suspect]
     Indication: GASTROOESOPHAGEAL REFLUX DISEASE
     Route: 048
     Dates: start: 20080801
  2. LEVOTHYROXINE [Concomitant]
  3. DIAZEPAM [Concomitant]

REACTIONS (5)
  - CONSTIPATION [None]
  - FATIGUE [None]
  - ILL-DEFINED DISORDER [None]
  - VASCULAR INJURY [None]
  - WEIGHT DECREASED [None]
